FAERS Safety Report 12887502 (Version 1)
Quarter: 2016Q4

REPORT INFORMATION
  Report Type: Spontaneous
  Country: US (occurrence: US)
  Receive Date: 20161026
  Receipt Date: 20161026
  Transmission Date: 20170207
  Serious: No
  Sender: FDA-Public Use
  Company Number: US-ASTRAZENECA-2016SF08683

PATIENT
  Sex: Female

DRUGS (2)
  1. OTHER DRUGS [Concomitant]
     Active Substance: UNSPECIFIED INGREDIENT
  2. BRILINTA [Suspect]
     Active Substance: TICAGRELOR
     Indication: ACUTE CORONARY SYNDROME
     Dosage: DOSE UNKNOWN, EVERY 12 HOURS
     Route: 048

REACTIONS (3)
  - Pain [Unknown]
  - Contusion [Unknown]
  - Malaise [Unknown]
